FAERS Safety Report 8470323-8 (Version None)
Quarter: 2012Q2

REPORT INFORMATION
  Report Type: 
  Country: None (occurrence: None)
  Receive Date: 20120627
  Receipt Date: 20120627
  Transmission Date: 20120825
  Serious: No
  Sender: FDA-Public Use
  Company Number: US-PFIZER INC-2012146123

PATIENT
  Sex: Female

DRUGS (3)
  1. HYDROCODONE [Concomitant]
     Indication: PAIN
  2. PROPRANOLOL HCL [Suspect]
     Indication: HYPERTENSION
     Dosage: 60 MG, UNK
  3. MAXZIDE [Concomitant]
     Indication: FLUID RETENTION
     Dosage: UNK

REACTIONS (3)
  - DRUG INEFFECTIVE [None]
  - CONTUSION [None]
  - HYPERSENSITIVITY [None]
